FAERS Safety Report 17068134 (Version 5)
Quarter: 2020Q1

REPORT INFORMATION
  Report Type: Spontaneous
  Country: DE (occurrence: DE)
  Receive Date: 20191122
  Receipt Date: 20200122
  Transmission Date: 20200409
  Serious: Yes (Death, Hospitalization, Other)
  Sender: FDA-Public Use
  Company Number: DE-CELLTRION INC.-2019DE026711

PATIENT

DRUGS (24)
  1. TACROLIMUS. [Suspect]
     Active Substance: TACROLIMUS
     Indication: IMMUNOSUPPRESSANT DRUG THERAPY
     Dosage: RESTARTED
     Route: 048
  2. TACROLIMUS. [Suspect]
     Active Substance: TACROLIMUS
     Dosage: INITIAL DOSAGE NOT STATED; HOWEVER, SHE HAD BEEN RECEIVING ORAL MYCOPHENOLATE MOFETIL AT 1.5 MG/...
     Route: 048
  3. METHYLPREDNISOLONE. [Suspect]
     Active Substance: METHYLPREDNISOLONE
     Indication: ENCEPHALITIS AUTOIMMUNE
     Dosage: 1 GRAM FOR 5 DAYS
     Route: 042
  4. RITUXIMAB (UNKNOWN) [Suspect]
     Active Substance: RITUXIMAB
     Indication: ENCEPHALITIS AUTOIMMUNE
     Dosage: TWO APPLICATIONS OF RITUXIMAB (2 X 1,000 MG WITHIN 14 DAYS).
     Route: 042
     Dates: start: 201512
  5. TACROLIMUS. [Suspect]
     Active Substance: TACROLIMUS
     Indication: PROPHYLAXIS AGAINST TRANSPLANT REJECTION
     Dosage: 1.5 MG, QD; (INITIAL DOSAGES NOT STATED)
     Route: 048
  6. TACROLIMUS. [Suspect]
     Active Substance: TACROLIMUS
     Dosage: UNK
     Route: 065
  7. RITUXIMAB (UNKNOWN) [Suspect]
     Active Substance: RITUXIMAB
     Indication: IMMUNOSUPPRESSANT DRUG THERAPY
     Dosage: UNK
     Route: 042
     Dates: start: 201606
  8. CYCLOPHOSPHAMIDE. [Suspect]
     Active Substance: CYCLOPHOSPHAMIDE
     Indication: IMMUNOSUPPRESSANT DRUG THERAPY
     Dosage: UNK
     Route: 065
  9. MYCOPHENOLATE MOFETIL. [Suspect]
     Active Substance: MYCOPHENOLATE MOFETIL
     Dosage: UNK
     Route: 065
  10. PHENYTOIN. [Concomitant]
     Active Substance: PHENYTOIN
     Indication: EPILEPSY
     Dosage: UNK
     Route: 065
  11. CYCLOPHOSPHAMIDE. [Suspect]
     Active Substance: CYCLOPHOSPHAMIDE
     Dosage: SHE WAS LATER READMITTED FOR ANOTHER COURSE OF CYCLOPHOSPHAMIDE
     Route: 065
  12. HYDROCORTISONE. [Suspect]
     Active Substance: HYDROCORTISONE
     Indication: IMMUNOSUPPRESSANT DRUG THERAPY
     Dosage: UNK
     Route: 042
  13. RITUXIMAB (UNKNOWN) [Suspect]
     Active Substance: RITUXIMAB
     Dosage: 2X 1000MG WITHIN 14 DAYS
     Route: 065
  14. HUMAN IMMUNOGLOBULIN (IMMUNOGLOBULIN HUMAN NORMAL) [Suspect]
     Active Substance: HUMAN IMMUNOGLOBULIN G
     Indication: ENCEPHALITIS AUTOIMMUNE
     Dosage: 60 GRAM, TOTAL
     Route: 042
  15. METHYLPREDNISOLONE. [Suspect]
     Active Substance: METHYLPREDNISOLONE
     Indication: IMMUNOSUPPRESSANT DRUG THERAPY
     Dosage: 1 GRAM DAILY FOR 5 DAYS (SECOND COURSE)
     Route: 042
  16. MYCOPHENOLATE MOFETIL. [Suspect]
     Active Substance: MYCOPHENOLATE MOFETIL
     Dosage: INITIAL DOSAGE NOT STATED, HOWEVER, SHE HAD BEEN RECEIVING ORAL MYCOPHENOLATE MOFETIL AT 1000 MG/...
     Route: 048
  17. RITUXIMAB (UNKNOWN) [Suspect]
     Active Substance: RITUXIMAB
     Dosage: UNK
     Route: 065
  18. RITUXIMAB (UNKNOWN) [Suspect]
     Active Substance: RITUXIMAB
     Dosage: TWO APPLICATIONS OF RITUXIMAB 2 X 1000MG WITHIN 14 DAYS; SHE WAS LATER READMITTED FOR ANOTHER COU...
     Route: 065
  19. CYCLOPHOSPHAMIDE. [Suspect]
     Active Substance: CYCLOPHOSPHAMIDE
     Indication: ENCEPHALITIS AUTOIMMUNE
     Dosage: 750 MG/M2
     Route: 065
  20. VALPROATE [Concomitant]
     Active Substance: VALPROIC ACID
     Indication: EPILEPSY
     Dosage: UNK
     Route: 065
  21. HUMAN IMMUNOGLOBULIN (IMMUNOGLOBULIN HUMAN NORMAL) [Suspect]
     Active Substance: HUMAN IMMUNOGLOBULIN G
     Indication: IMMUNOSUPPRESSANT DRUG THERAPY
     Dosage: TWO CYCLES OF INTRAVENOUS IMMUNOGLOBULINS (60G IN TOTAL) WAS ADMINISTERED
     Route: 042
  22. HYDROCORTISONE. [Suspect]
     Active Substance: HYDROCORTISONE
     Indication: PROPHYLAXIS AGAINST TRANSPLANT REJECTION
  23. MYCOPHENOLATE MOFETIL. [Suspect]
     Active Substance: MYCOPHENOLATE MOFETIL
     Indication: PROPHYLAXIS AGAINST TRANSPLANT REJECTION
     Dosage: 1000 NG, QD; (INITIAL DOSAGES NOT STATED)
     Route: 048
  24. MYCOPHENOLATE MOFETIL. [Suspect]
     Active Substance: MYCOPHENOLATE MOFETIL
     Indication: IMMUNOSUPPRESSANT DRUG THERAPY
     Dosage: RESTARTED
     Route: 048

REACTIONS (11)
  - Product use in unapproved indication [Fatal]
  - Central nervous system viral infection [Fatal]
  - Altered state of consciousness [Fatal]
  - Sepsis [Fatal]
  - Apallic syndrome [Fatal]
  - Epilepsy [Fatal]
  - Drug ineffective for unapproved indication [Fatal]
  - Gait inability [Fatal]
  - Encephalitis autoimmune [Fatal]
  - Epstein-Barr virus infection [Fatal]
  - Cachexia [Fatal]
